FAERS Safety Report 13066810 (Version 2)
Quarter: 2016Q4

REPORT INFORMATION
  Report Type: Spontaneous
  Country: US (occurrence: US)
  Receive Date: 20161227
  Receipt Date: 20161230
  Transmission Date: 20170207
  Serious: Yes (Other)
  Sender: FDA-Public Use
  Company Number: US-CELGENEUS-USA-2016125406

PATIENT
  Sex: Female
  Weight: 104.42 kg

DRUGS (1)
  1. OTEZLA [Suspect]
     Active Substance: APREMILAST
     Indication: PSORIASIS
     Route: 048
     Dates: start: 20161027

REACTIONS (3)
  - Neoplasm malignant [Unknown]
  - Abdominal discomfort [Unknown]
  - Pain [Unknown]
